FAERS Safety Report 7540210-8 (Version None)
Quarter: 2011Q2

REPORT INFORMATION
  Report Type: 
  Country: None (occurrence: None)
  Receive Date: 20110610
  Receipt Date: 20110530
  Transmission Date: 20111010
  Serious: Yes (Other)
  Sender: FDA-Public Use
  Company Number: DE-TEVA-284815GER

PATIENT
  Age: 55 Year
  Sex: Male

DRUGS (2)
  1. MITOXANTRONE [Suspect]
     Dosage: .1111 MG/M2;
  2. METHYLPREDNISOLONE [Concomitant]

REACTIONS (1)
  - ACUTE FEBRILE NEUTROPHILIC DERMATOSIS [None]
